FAERS Safety Report 7009150-7 (Version None)
Quarter: 2010Q3

REPORT INFORMATION
  Report Type: 
  Country: None (occurrence: None)
  Receive Date: 20100923
  Receipt Date: 20100915
  Transmission Date: 20110219
  Serious: Yes (Disabling, Other)
  Sender: FDA-Public Use
  Company Number: US-JNJFOC-20100905924

PATIENT
  Sex: Female

DRUGS (2)
  1. LEVAQUIN [Suspect]
     Indication: PRODUCT USED FOR UNKNOWN INDICATION
     Route: 065
  2. PREDNISONE [Concomitant]
     Route: 065

REACTIONS (7)
  - ARRHYTHMIA [None]
  - BEDRIDDEN [None]
  - BRAIN INJURY [None]
  - CARTILAGE INJURY [None]
  - MUSCLE INJURY [None]
  - TENDON INJURY [None]
  - WHEELCHAIR USER [None]
